FAERS Safety Report 17732627 (Version 3)
Quarter: 2020Q2

REPORT INFORMATION
  Report Type: Spontaneous
  Country: CA (occurrence: CA)
  Receive Date: 20200501
  Receipt Date: 20200619
  Transmission Date: 20200714
  Serious: Yes (Hospitalization, Other)
  Sender: FDA-Public Use
  Company Number: CA-CELLTRION INC.-2019CA021333

PATIENT

DRUGS (27)
  1. INFLECTRA [Suspect]
     Active Substance: INFLIXIMAB-DYYB
     Dosage: 400 MG, EVERY 6 WEEKS
     Route: 042
     Dates: start: 20190724
  2. INFLECTRA [Suspect]
     Active Substance: INFLIXIMAB-DYYB
     Dosage: 400 MG, EVERY 6 WEEKS
     Route: 042
     Dates: start: 20190904
  3. CITALOPRAM [Concomitant]
     Active Substance: CITALOPRAM HYDROBROMIDE
     Dosage: 20 MG, 1X/DAY
     Route: 065
     Dates: start: 2013
  4. TEMAZEPAM. [Concomitant]
     Active Substance: TEMAZEPAM
     Dosage: 30 MG, 1X/DAY (AT BEDTIME)
     Route: 065
  5. LAMOTRIGINE. [Concomitant]
     Active Substance: LAMOTRIGINE
     Dosage: 100 MG, 2X/DAY
     Route: 048
  6. INFLECTRA [Suspect]
     Active Substance: INFLIXIMAB-DYYB
     Dosage: 400 MG, WEEK 0 , 2 , 6 THEN EVERY 8 WEEKS
     Route: 042
     Dates: start: 20190306, end: 20190306
  7. XARELTO [Concomitant]
     Active Substance: RIVAROXABAN
     Dosage: 20 MG, UNK
     Route: 048
  8. ESCITALOPRAM [Concomitant]
     Active Substance: ESCITALOPRAM OXALATE
     Dosage: 10 MG, DAILY
  9. ZYPREXA [Concomitant]
     Active Substance: OLANZAPINE
     Dosage: 10 MG, 2X/DAY
  10. INFLECTRA [Suspect]
     Active Substance: INFLIXIMAB-DYYB
     Indication: CROHN^S DISEASE
     Dosage: 400 MG, WEEK 0 , 2 , 6 THEN EVERY 8 WEEKS
     Route: 042
     Dates: start: 20180613
  11. LURASIDONE [Concomitant]
     Active Substance: LURASIDONE
     Dosage: 20 MG, 1X/DAY (AT SUPPER OR BEDTIME)
  12. OLANZAPINE. [Concomitant]
     Active Substance: OLANZAPINE
     Dosage: 10 MG, 2X/DAY
  13. CIPROFLOXACIN. [Concomitant]
     Active Substance: CIPROFLOXACIN
     Dosage: 500 MG, EVERY HOUR FOR 7 DAYS
     Route: 042
     Dates: start: 202004
  14. LATUDA [Concomitant]
     Active Substance: LURASIDONE HYDROCHLORIDE
     Dosage: 20 MG, 1X/DAY (AT NIGHT TIME)
     Dates: start: 2017
  15. CLONAZEPAM. [Concomitant]
     Active Substance: CLONAZEPAM
     Dosage: 0.5 MG, 3X/DAY (TO BE CLOSELY WEANED OFF)
  16. LATUDA [Concomitant]
     Active Substance: LURASIDONE HYDROCHLORIDE
     Dosage: 40 MG, 1X/DAY
     Route: 065
  17. PANTOPRAZOLE [Concomitant]
     Active Substance: PANTOPRAZOLE
     Dosage: 80 MG, 1X/DAY
     Route: 065
  18. VASELINE [PARAFFIN SOFT] [Concomitant]
     Dosage: UNK, ALTERNATE DAY
  19. INFLECTRA [Suspect]
     Active Substance: INFLIXIMAB-DYYB
     Indication: COLITIS ULCERATIVE
     Dosage: 400 MG, WEEK 0 , 2 , 6 THEN EVERY 8 WEEKS
     Route: 042
     Dates: start: 20190109
  20. INFLECTRA [Suspect]
     Active Substance: INFLIXIMAB-DYYB
     Dosage: 400 MG, EVERY 6 WEEKS
     Route: 042
     Dates: start: 20200311, end: 20200317
  21. HYDROCORTISONE. [Concomitant]
     Active Substance: HYDROCORTISONE
     Indication: PREMEDICATION
     Dosage: 100 MG
     Route: 042
     Dates: start: 20200612
  22. INFLECTRA [Suspect]
     Active Substance: INFLIXIMAB-DYYB
     Dosage: 400 MG, EVERY 6 WEEKS
     Route: 042
     Dates: start: 20190501
  23. INFLECTRA [Suspect]
     Active Substance: INFLIXIMAB-DYYB
     Dosage: 400 MG, EVERY 6 WEEKS
     Route: 042
     Dates: start: 20200108
  24. INFLECTRA [Suspect]
     Active Substance: INFLIXIMAB-DYYB
     Dosage: 400 MG, EVERY 6 WEEKS
     Route: 042
     Dates: start: 20200429
  25. INFLECTRA [Suspect]
     Active Substance: INFLIXIMAB-DYYB
     Dosage: 400 MG, EVERY 6 WEEKS
     Route: 042
     Dates: start: 20200612
  26. SUSTENAN [TESTOSTERONE UNDECANOATE] [Concomitant]
     Dosage: 100 MG, MONTHLY
  27. HYDROCORTISONE. [Concomitant]
     Active Substance: HYDROCORTISONE
     Dosage: UNK, ALTERNATE DAY
     Dates: start: 202004

REACTIONS (21)
  - Aggression [Unknown]
  - Body temperature decreased [Unknown]
  - Musculoskeletal chest pain [Unknown]
  - Lethargy [Unknown]
  - Behaviour disorder [Unknown]
  - Limb injury [Unknown]
  - Fall [Unknown]
  - Off label use [Unknown]
  - Peroneal nerve palsy [Unknown]
  - Off label use [Unknown]
  - Dehydration [Unknown]
  - Condition aggravated [Not Recovered/Not Resolved]
  - Neglect of personal appearance [Unknown]
  - Impaired quality of life [Unknown]
  - Intentional product use issue [Unknown]
  - COVID-19 [Recovered/Resolved]
  - Belligerence [Unknown]
  - Confusional state [Unknown]
  - Musculoskeletal pain [Unknown]
  - Inappropriate schedule of product administration [Unknown]
  - Delusional disorder, unspecified type [Unknown]

NARRATIVE: CASE EVENT DATE: 20190501
